FAERS Safety Report 8274987-3 (Version None)
Quarter: 2012Q1

REPORT INFORMATION
  Report Type: 
  Country: None (occurrence: None)
  Receive Date: 20120309
  Receipt Date: 20120124
  Transmission Date: 20120608
  Serious: Yes (Hospitalization)
  Sender: FDA-Public Use
  Company Number: TH-2012-00068

PATIENT
  Age: 58 Year
  Sex: Male
  Weight: 78 kg

DRUGS (2)
  1. EGRIFTA [Suspect]
     Indication: LIPOHYPERTROPHY
     Dates: start: 20110801
  2. METFORMIN HCL [Concomitant]

REACTIONS (6)
  - MYALGIA [None]
  - VOMITING [None]
  - DIARRHOEA [None]
  - NAUSEA [None]
  - PARAESTHESIA [None]
  - CHILLS [None]
